FAERS Safety Report 15799606 (Version 1)
Quarter: 2019Q1

REPORT INFORMATION
  Report Type: Spontaneous
  Country: US (occurrence: US)
  Receive Date: 20190108
  Receipt Date: 20190108
  Transmission Date: 20190417
  Serious: Yes (Death, Hospitalization)
  Sender: FDA-Public Use
  Company Number: US-PFIZER INC-2019007025

PATIENT
  Age: 30 Year
  Sex: Female

DRUGS (3)
  1. DIPHENHYDRAMINE HCL [Suspect]
     Active Substance: DIPHENHYDRAMINE HYDROCHLORIDE
     Dosage: UNK
  2. CANNABIS [Suspect]
     Active Substance: CANNABIS SATIVA SUBSP. INDICA TOP
     Dosage: UNK
  3. TURMERIC [CURCUMA LONGA RHIZOME] [Suspect]
     Active Substance: HERBALS\TURMERIC
     Dosage: UNK (INFUSION)
     Route: 051

REACTIONS (4)
  - Cardiac arrest [Fatal]
  - Hypoxic-ischaemic encephalopathy [Fatal]
  - Death [Fatal]
  - Respiratory arrest [Fatal]

NARRATIVE: CASE EVENT DATE: 2017
